FAERS Safety Report 24806634 (Version 2)
Quarter: 2025Q1

REPORT INFORMATION
  Report Type: Report from Study
  Country: GB (occurrence: GB)
  Receive Date: 20250104
  Receipt Date: 20250217
  Transmission Date: 20250409
  Serious: Yes (Other)
  Sender: UCB
  Company Number: GB-UCBSA-2024009134

PATIENT
  Sex: Male

DRUGS (1)
  1. BIMEKIZUMAB [Suspect]
     Active Substance: BIMEKIZUMAB
     Indication: Psoriasis
     Dosage: 160 MILLIGRAM, EV 8 WEEKS
     Route: 058
     Dates: start: 202311

REACTIONS (9)
  - Loss of consciousness [Unknown]
  - Influenza [Unknown]
  - Dehydration [Unknown]
  - Pyrexia [Unknown]
  - Dizziness [Unknown]
  - Injection site pain [Unknown]
  - Malaise [Unknown]
  - Device delivery system issue [Unknown]
  - Incorrect dose administered [Unknown]
